FAERS Safety Report 24288580 (Version 2)
Quarter: 2024Q3

REPORT INFORMATION
  Report Type: Spontaneous
  Country: US (occurrence: US)
  Receive Date: 20240906
  Receipt Date: 20240906
  Transmission Date: 20241017
  Serious: Yes (Other)
  Sender: ROCHE
  Company Number: US-ROCHE-10000072681

PATIENT
  Age: 73 Year
  Sex: Male

DRUGS (2)
  1. VEMURAFENIB [Suspect]
     Active Substance: VEMURAFENIB
     Indication: Salivary gland cancer
     Route: 065
  2. NEXAVAR [Suspect]
     Active Substance: SORAFENIB
     Indication: Salivary gland cancer
     Route: 065

REACTIONS (20)
  - Skin lesion [Unknown]
  - Gingival pain [Unknown]
  - Skin exfoliation [Unknown]
  - Skin irritation [Unknown]
  - Neoplasm skin [Unknown]
  - Vision blurred [Unknown]
  - Wheelchair user [Unknown]
  - Fatigue [Unknown]
  - Pruritus [Unknown]
  - Scab [Unknown]
  - Pain in extremity [Unknown]
  - Rash [Unknown]
  - Renal function test abnormal [Unknown]
  - Palmoplantar keratoderma [Unknown]
  - Burning sensation [Unknown]
  - Alopecia [Unknown]
  - Oedema peripheral [Unknown]
  - Dry mouth [Unknown]
  - Gingival bleeding [Unknown]
  - Off label use [Unknown]

NARRATIVE: CASE EVENT DATE: 20160101
